FAERS Safety Report 20953620 (Version 2)
Quarter: 2022Q3

REPORT INFORMATION
  Report Type: Other
  Country: US (occurrence: None)
  Receive Date: 20220613
  Receipt Date: 20220913
  Transmission Date: 20221027
  Serious: Yes (Hospitalization, Other)
  Sender: FDA-Public Use
  Company Number: US-ROCHE-2614452

PATIENT
  Sex: Female

DRUGS (2)
  1. VALCYTE [Suspect]
     Active Substance: VALGANCICLOVIR HYDROCHLORIDE
     Indication: Lung transplant
     Dosage: ^MONDAY WEDNESDAY FRIDAY^, 450MG EVERY OTHER DAY, 90 DAYS SUPPLY. LAST DATE OF TREATMENT: 10/JAN/202
     Route: 048
  2. VALCYTE [Suspect]
     Active Substance: VALGANCICLOVIR HYDROCHLORIDE
     Dosage: ONE TABLET EVERY OTHER DAY
     Route: 048

REACTIONS (3)
  - Off label use [Unknown]
  - Diabetes mellitus [Unknown]
  - COVID-19 [Unknown]
